FAERS Safety Report 13359393 (Version 2)
Quarter: 2017Q2

REPORT INFORMATION
  Report Type: Report from Study
  Country: SE (occurrence: SE)
  Receive Date: 20170322
  Receipt Date: 20170411
  Transmission Date: 20170830
  Serious: Yes (Hospitalization, Other)
  Sender: FDA-Public Use
  Company Number: SE-ASTELLAS-2017US010576

PATIENT
  Age: 79 Year
  Sex: Male
  Weight: 105 kg

DRUGS (8)
  1. NAPROXEN. [Concomitant]
     Active Substance: NAPROXEN
     Indication: ARTHRALGIA
  2. ALVEDON [Concomitant]
     Active Substance: ACETAMINOPHEN
     Indication: ARTHRALGIA
  3. NAPROXEN. [Concomitant]
     Active Substance: NAPROXEN
     Indication: BONE PAIN
     Route: 048
     Dates: start: 20140914
  4. ALFUZOSIN [Concomitant]
     Active Substance: ALFUZOSIN
     Indication: NOCTURIA
     Dosage: 10 MG (TOTAL DAILY DOSE), UNKNOWN FREQ.
     Route: 048
     Dates: start: 20141230
  5. ALVEDON [Concomitant]
     Active Substance: ACETAMINOPHEN
     Indication: BONE PAIN
     Dosage: 1330 MG (TOTAL DAILY DOSE), UNKNOWN FREQ.
     Route: 048
     Dates: start: 20140204
  6. ENZALUTAMIDE [Suspect]
     Active Substance: ENZALUTAMIDE
     Indication: PROSTATE CANCER
     Route: 048
     Dates: start: 20151016
  7. ESOMEPRAZOLE [Concomitant]
     Active Substance: ESOMEPRAZOLE
     Indication: OESOPHAGITIS
     Dosage: 40 MG (TOTAL DAILY DOSE), UNKNOWN FREQ.
     Route: 048
     Dates: start: 20141218
  8. RINEXIN [Concomitant]
     Active Substance: PHENYLPROPANOLAMINE
     Indication: RHINITIS
     Dosage: 100 MG (TOTAL DAILY DOSE), UNKNOWN FREQ.
     Route: 048
     Dates: start: 20160107

REACTIONS (2)
  - Pneumonia [Recovered/Resolved]
  - Anaemia [Recovered/Resolved]

NARRATIVE: CASE EVENT DATE: 20170315
